FAERS Safety Report 8285025 (Version 5)
Quarter: 2014Q3

REPORT INFORMATION
  Report Type: Spontaneous
  Country: US (occurrence: US)
  Receive Date: 20111212
  Receipt Date: 20140910
  Transmission Date: 20150326
  Serious: Yes (Hospitalization, Congenital Anomaly, Other)
  Sender: FDA-Public Use
  Company Number: US-PFIZER INC-2011297709

PATIENT
  Sex: Male
  Weight: 4.4 kg

DRUGS (13)
  1. PRENATAL VITAMINS [Concomitant]
     Active Substance: VITAMINS
     Dosage: UNK
     Route: 064
  2. PSEUDOEPHEDRINE [Concomitant]
     Active Substance: PSEUDOEPHEDRINE
     Indication: DYSPNOEA
     Dosage: UNK
     Route: 064
  3. EFFEXOR [Suspect]
     Active Substance: VENLAFAXINE HYDROCHLORIDE
     Dosage: 150 MG, UNK
     Route: 064
     Dates: end: 200411
  4. EFFEXOR [Suspect]
     Active Substance: VENLAFAXINE HYDROCHLORIDE
     Dosage: 112.5 MG, UNK
     Route: 064
     Dates: start: 200411
  5. EFFEXOR [Suspect]
     Active Substance: VENLAFAXINE HYDROCHLORIDE
     Dosage: UNK, SAMPLES
     Route: 064
     Dates: start: 20050916
  6. EFFEXOR [Suspect]
     Active Substance: VENLAFAXINE HYDROCHLORIDE
     Dosage: 35 MG, UNK
     Route: 064
  7. GUAIFENESIN. [Concomitant]
     Active Substance: GUAIFENESIN
     Indication: DYSPNOEA
     Dosage: UNK
     Route: 064
  8. NASAL SALINE [Concomitant]
     Indication: NASAL CONGESTION
     Dosage: UNK
     Route: 064
  9. EFFEXOR [Suspect]
     Active Substance: VENLAFAXINE HYDROCHLORIDE
     Indication: POSTPARTUM DEPRESSION
     Dosage: UNK
     Route: 064
     Dates: start: 200201
  10. EFFEXOR [Suspect]
     Active Substance: VENLAFAXINE HYDROCHLORIDE
     Dosage: 75 MG, UNK
     Route: 064
     Dates: end: 20050915
  11. PSEUDOEPHEDRINE [Concomitant]
     Active Substance: PSEUDOEPHEDRINE
     Indication: NASAL CONGESTION
  12. GUAIFENESIN. [Concomitant]
     Active Substance: GUAIFENESIN
     Indication: NASAL CONGESTION
  13. EFFEXOR [Suspect]
     Active Substance: VENLAFAXINE HYDROCHLORIDE
     Dosage: 37.5 MG, UNK
     Route: 064
     Dates: start: 20050915, end: 200512

REACTIONS (6)
  - Atrial septal defect [Unknown]
  - Bicuspid aortic valve [Unknown]
  - Electrocardiogram QT prolonged [Recovered/Resolved]
  - Coarctation of the aorta [Unknown]
  - Congenital anomaly [Unknown]
  - Maternal exposure during pregnancy [Recovered/Resolved]

NARRATIVE: CASE EVENT DATE: 20060804
